FAERS Safety Report 8130165-X (Version None)
Quarter: 2012Q1

REPORT INFORMATION
  Report Type: 
  Country: None (occurrence: None)
  Receive Date: 20120210
  Receipt Date: 20120201
  Transmission Date: 20120608
  Serious: Yes (Disabling)
  Sender: FDA-Public Use
  Company Number: JP-ALLERGAN-1201789US

PATIENT
  Age: 39 Year
  Sex: Male

DRUGS (2)
  1. LATANOPROST [Concomitant]
     Dosage: UNK
     Dates: start: 20111101, end: 20111206
  2. LUMIGAN [Suspect]
     Indication: GLAUCOMATOCYCLITIC CRISES
     Dosage: 2 GTT, QPM
     Route: 047
     Dates: start: 20111207, end: 20120118

REACTIONS (2)
  - INTRAOCULAR PRESSURE INCREASED [None]
  - EYE INFLAMMATION [None]
